FAERS Safety Report 12291921 (Version 1)
Quarter: 2016Q2

REPORT INFORMATION
  Report Type: Report from Study
  Country: US (occurrence: US)
  Receive Date: 20160421
  Receipt Date: 20160421
  Transmission Date: 20160815
  Serious: No
  Sender: FDA-Public Use
  Company Number: US-AMGEN-USASL2016035443

PATIENT
  Age: 70 Year
  Sex: Female
  Weight: 67.13 kg

DRUGS (12)
  1. REPATHA [Suspect]
     Active Substance: EVOLOCUMAB
     Indication: HYPERLIPIDAEMIA
     Dosage: 140 MG/ML, Q2WK
     Route: 058
     Dates: start: 20160125
  2. NITROGLYCERIN. [Concomitant]
     Active Substance: NITROGLYCERIN
     Indication: CHEST PAIN
     Dosage: 0.4 MG, UNK
     Route: 048
  3. SYNTHROID [Concomitant]
     Active Substance: LEVOTHYROXINE SODIUM
     Dosage: 50 MUG, ONE TIME DOSE
     Route: 048
  4. FLECAINIDE ACETATE. [Concomitant]
     Active Substance: FLECAINIDE ACETATE
     Dosage: 50 MG, Q12H
     Route: 048
  5. NIASPAN [Concomitant]
     Active Substance: NIACIN
     Dosage: 500 MG, UNK
     Route: 048
  6. TAZORAC [Concomitant]
     Active Substance: TAZAROTENE
     Dosage: UNK UNK, QD
  7. VALIUM [Concomitant]
     Active Substance: DIAZEPAM
     Dosage: 05 MG, QHS
  8. LIVALO [Suspect]
     Active Substance: PITAVASTATIN CALCIUM
     Indication: PRODUCT USED FOR UNKNOWN INDICATION
     Dosage: 1 MG, QD
     Route: 048
  9. CARDIZEM [Concomitant]
     Active Substance: DILTIAZEM HYDROCHLORIDE
     Dosage: 120 MG, QD
  10. ASPIRIN                            /00002701/ [Concomitant]
     Active Substance: ASPIRIN
     Dosage: 81 MG, QD
  11. NITROSTAT [Concomitant]
     Active Substance: NITROGLYCERIN
     Indication: CHEST PAIN
     Dosage: 0.4 MG, Q5MIN
     Route: 048
  12. CYTOMEL [Concomitant]
     Active Substance: LIOTHYRONINE SODIUM
     Dosage: 05 MUG, BID
     Route: 048

REACTIONS (9)
  - Low density lipoprotein increased [Unknown]
  - Abdominal discomfort [Recovered/Resolved]
  - Hyperglycaemia [Recovered/Resolved]
  - Eructation [Unknown]
  - Eye infection [Unknown]
  - Dyspnoea [Unknown]
  - Gastrointestinal sounds abnormal [Unknown]
  - Constipation [Not Recovered/Not Resolved]
  - Abdominal pain upper [Unknown]
